FAERS Safety Report 21217747 (Version 1)
Quarter: 2022Q3

REPORT INFORMATION
  Report Type: Spontaneous
  Country: US (occurrence: US)
  Receive Date: 20220816
  Receipt Date: 20220816
  Transmission Date: 20221027
  Serious: Yes (Other)
  Sender: FDA-Public Use
  Company Number: US-SA-SAC20220811000806

PATIENT
  Age: 55 Year
  Sex: Female

DRUGS (1)
  1. ZANTAC [Suspect]
     Active Substance: RANITIDINE HYDROCHLORIDE
     Dosage: 150 MG;FREQUENCY: OTHER
     Dates: start: 199001, end: 202004

REACTIONS (2)
  - Breast cancer stage II [Recovered/Resolved]
  - Renal cancer stage I [Recovered/Resolved]

NARRATIVE: CASE EVENT DATE: 20191202
